FAERS Safety Report 5613606-9 (Version None)
Quarter: 2008Q1

REPORT INFORMATION
  Report Type: 
  Country: None (occurrence: None)
  Receive Date: 20080205
  Receipt Date: 20080131
  Transmission Date: 20080703
  Serious: Yes (Death, Other)
  Sender: FDA-Public Use
  Company Number: PHHY2008BR01146

PATIENT
  Age: 85 Year
  Sex: Female

DRUGS (3)
  1. HYDROCHLOROTHIAZIDE [Concomitant]
     Indication: HYPERTENSION
     Dosage: 25 MG, 1/2 TABLET DAILY
  2. CLONAZEPAM [Concomitant]
     Indication: INSOMNIA
     Dosage: 2 MG, QD
  3. EXELON [Suspect]
     Indication: DEMENTIA ALZHEIMER'S TYPE
     Dosage: 4.5 MG, UNK
     Dates: start: 20000101

REACTIONS (2)
  - FALL [None]
  - TRAUMATIC INTRACRANIAL HAEMORRHAGE [None]
